FAERS Safety Report 23272257 (Version 3)
Quarter: 2024Q2

REPORT INFORMATION
  Report Type: Spontaneous
  Country: US (occurrence: US)
  Receive Date: 20231207
  Receipt Date: 20240526
  Transmission Date: 20240716
  Serious: No
  Sender: FDA-Public Use
  Company Number: US-MYLANLABS-2023M1125118

PATIENT

DRUGS (1)
  1. SEMGLEE (INSULIN GLARGINE-YFGN) [Suspect]
     Active Substance: INSULIN GLARGINE-YFGN
     Indication: Diabetes mellitus
     Dosage: UNK (55 UNITS/ML), QD
     Route: 058

REACTIONS (3)
  - Incorrect dose administered [Unknown]
  - Device breakage [Unknown]
  - Device defective [Unknown]
